FAERS Safety Report 4626700-6 (Version None)
Quarter: 2005Q2

REPORT INFORMATION
  Report Type: 
  Country: None (occurrence: None)
  Receive Date: 20050405
  Receipt Date: 20050324
  Transmission Date: 20051028
  Serious: Yes (Death, Life-Threatening)
  Sender: FDA-Public Use
  Company Number: JP-JNJFOC-20040603393

PATIENT
  Sex: Female
  Weight: 53 kg

DRUGS (12)
  1. REMICADE [Suspect]
  2. REMICADE [Suspect]
  3. REMICADE [Suspect]
     Indication: RHEUMATOID ARTHRITIS
  4. RHEUMATREX [Suspect]
     Route: 049
  5. RHEUMATREX [Suspect]
     Indication: RHEUMATOID ARTHRITIS
     Route: 049
  6. CLINORIL [Suspect]
     Indication: RHEUMATOID ARTHRITIS
     Route: 049
  7. PREDONINE [Concomitant]
     Indication: RHEUMATOID ARTHRITIS
     Route: 049
  8. SOLU-CORTEF [Concomitant]
     Indication: RHEUMATOID ARTHRITIS
     Route: 042
  9. SOLU-MEDROL [Concomitant]
     Indication: RHEUMATOID ARTHRITIS
     Route: 042
  10. SELBEX [Concomitant]
     Route: 049
  11. CARDENALIN [Concomitant]
     Route: 049
  12. NIVADIL [Concomitant]
     Route: 049

REACTIONS (14)
  - ANOREXIA [None]
  - CARDIAC FAILURE [None]
  - DRUG EFFECT DECREASED [None]
  - DYSPNOEA [None]
  - GENERAL PHYSICAL HEALTH DETERIORATION [None]
  - HEPATIC FAILURE [None]
  - LYMPHOMA [None]
  - MALAISE [None]
  - MULTI-ORGAN FAILURE [None]
  - PANCYTOPENIA [None]
  - PERICARDIAL EFFUSION [None]
  - PYREXIA [None]
  - RENAL FAILURE [None]
  - RESPIRATORY FAILURE [None]
